FAERS Safety Report 6216249-1 (Version None)
Quarter: 2009Q2

REPORT INFORMATION
  Report Type: 
  Country: None (occurrence: None)
  Receive Date: 20090605
  Receipt Date: 20090528
  Transmission Date: 20091009
  Serious: Yes (Other)
  Sender: FDA-Public Use
  Company Number: B0534045A

PATIENT
  Sex: Female

DRUGS (4)
  1. SERETIDE [Suspect]
     Indication: ASTHMA
     Dosage: 2PUFF TWICE PER DAY
     Route: 055
     Dates: start: 20060101
  2. VENTOLIN [Suspect]
     Indication: ASTHMA
     Dosage: 100MCG AS REQUIRED
     Route: 055
  3. SIMVASTATIN [Suspect]
     Indication: DRUG USE FOR UNKNOWN INDICATION
     Dosage: 40MG SINGLE DOSE
     Route: 065
  4. IRBESARTAN [Suspect]
     Indication: HYPERTENSION
     Dosage: 150MG PER DAY
     Route: 065

REACTIONS (5)
  - ASTHMA [None]
  - CHEST DISCOMFORT [None]
  - CORNEAL ABRASION [None]
  - DYSPNOEA [None]
  - EYE INFLAMMATION [None]
